FAERS Safety Report 6457268-X (Version None)
Quarter: 2009Q4

REPORT INFORMATION
  Report Type: 
  Country: None (occurrence: None)
  Receive Date: 20091125
  Receipt Date: 20091005
  Transmission Date: 20100525
  Serious: Yes (Death)
  Sender: FDA-Public Use
  Company Number: FR-PFIZER INC-2009270843

PATIENT
  Age: 76 Year
  Sex: Female
  Weight: 80 kg

DRUGS (15)
  1. CAMPTOSAR [Suspect]
     Indication: COLON CANCER METASTATIC
     Dosage: UNK
     Route: 042
     Dates: start: 20080910, end: 20090505
  2. FLUOROURACIL [Suspect]
     Indication: COLON CANCER METASTATIC
     Dosage: UNK
     Route: 042
     Dates: start: 20080910, end: 20090505
  3. AVASTIN [Suspect]
     Indication: COLON CANCER METASTATIC
     Dosage: 5 MG/KG
     Route: 042
     Dates: start: 20080912, end: 20090311
  4. ERBITUX [Suspect]
     Indication: COLON CANCER METASTATIC
     Dosage: UNK
     Route: 042
     Dates: start: 20090407, end: 20090505
  5. ELVORINE [Suspect]
     Indication: COLON CANCER METASTATIC
     Dosage: UNK
     Route: 042
     Dates: start: 20080910, end: 20090407
  6. ZOPHREN [Concomitant]
  7. ATROPINE [Concomitant]
  8. SOLU-MEDROL [Concomitant]
  9. POLARAMINE [Concomitant]
  10. NEULASTA [Concomitant]
     Dosage: UNK
     Dates: start: 20081006
  11. ACTOS [Concomitant]
  12. NOVONORM [Concomitant]
  13. PRAVASTATIN [Concomitant]
  14. COAPROVEL [Concomitant]
  15. CELIPROLOL [Concomitant]

REACTIONS (1)
  - INTRACRANIAL TUMOUR HAEMORRHAGE [None]
